FAERS Safety Report 14593320 (Version 4)
Quarter: 2020Q1

REPORT INFORMATION
  Report Type: Spontaneous
  Country: US (occurrence: US)
  Receive Date: 20180302
  Receipt Date: 20200217
  Transmission Date: 20200409
  Serious: Yes (Other)
  Sender: FDA-Public Use
  Company Number: US-PFIZER INC-2018083220

PATIENT
  Sex: Female

DRUGS (1)
  1. PREMPRO [Suspect]
     Active Substance: ESTROGENS, CONJUGATED\MEDROXYPROGESTERONE ACETATE
     Dosage: UNK (0.45/1.5)

REACTIONS (5)
  - Depression [Unknown]
  - Anxiety [Unknown]
  - Choking sensation [Unknown]
  - Intentional self-injury [Unknown]
  - Crying [Unknown]
